FAERS Safety Report 7812712-8 (Version None)
Quarter: 2011Q4

REPORT INFORMATION
  Report Type: 
  Country: None (occurrence: None)
  Receive Date: 20111013
  Receipt Date: 20111003
  Transmission Date: 20120403
  Serious: Yes (Other)
  Sender: FDA-Public Use
  Company Number: GB-ACTELION-A-CH2011-53318

PATIENT
  Sex: Male

DRUGS (10)
  1. TRACLEER [Suspect]
     Indication: PULMONARY ARTERIAL HYPERTENSION
     Dosage: 62.5 MG, BID
     Route: 048
     Dates: start: 20100322
  2. PANTOPRAZOLE [Concomitant]
     Dosage: 40 MG, OD
     Dates: start: 19990111
  3. SPIRONOLACTONE [Concomitant]
     Dosage: 25 MG, OD
     Dates: start: 19990111
  4. TRACLEER [Suspect]
     Dosage: UNK
     Route: 048
  5. CARBOMER [Concomitant]
     Dosage: UNK
     Dates: start: 20090415
  6. PEPTAC [Concomitant]
     Dosage: UNK
     Dates: start: 20100225
  7. VENTOLIN [Concomitant]
     Dosage: UNK
     Dates: start: 20080207
  8. FUROSEMIDE [Concomitant]
     Dosage: 20 MG, OD
     Dates: start: 20040202
  9. AZATHIOPRINE [Concomitant]
     Dosage: UNK
     Dates: start: 20100303
  10. DOMPERIDONE [Concomitant]
     Dosage: UNK
     Dates: start: 20090321

REACTIONS (3)
  - FURUNCLE [None]
  - RASH PUSTULAR [None]
  - RECURRING SKIN BOILS [None]
